FAERS Safety Report 5763942-0 (Version None)
Quarter: 2008Q2

REPORT INFORMATION
  Report Type: 
  Country: None (occurrence: None)
  Receive Date: 20080606
  Receipt Date: 20080606
  Transmission Date: 20081010
  Serious: No
  Sender: FDA-Public Use
  Company Number: None

PATIENT
  Age: 39 Year
  Sex: Female
  Weight: 80.7403 kg

DRUGS (4)
  1. GADOLINIUM [Suspect]
     Indication: MIGRAINE
     Dosage: ONCE INTRA-ARTERIAL
     Route: 013
     Dates: start: 20020923, end: 20060321
  2. GADOLINIUM [Suspect]
     Indication: TINNITUS
     Dosage: ONCE INTRA-ARTERIAL
     Route: 013
     Dates: start: 20020923, end: 20060321
  3. GADOLINIUM [Suspect]
     Indication: MIGRAINE
     Dosage: ONCE INTRA-ARTERIAL
     Route: 013
     Dates: start: 20040221, end: 20060324
  4. GADOLINIUM [Suspect]
     Indication: TINNITUS
     Dosage: ONCE INTRA-ARTERIAL
     Route: 013
     Dates: start: 20040221, end: 20060324

REACTIONS (3)
  - FLANK PAIN [None]
  - HAEMATURIA [None]
  - TENDERNESS [None]
